FAERS Safety Report 6636007-3 (Version None)
Quarter: 2010Q1

REPORT INFORMATION
  Report Type: 
  Country: None (occurrence: None)
  Receive Date: 20100309
  Receipt Date: 20100226
  Transmission Date: 20100710
  Serious: Yes (Other)
  Sender: FDA-Public Use
  Company Number: 230003M06AUS

PATIENT
  Sex: Female

DRUGS (2)
  1. REBIF [Suspect]
     Indication: MULTIPLE SCLEROSIS
     Dates: start: 20020301, end: 20080101
  2. AZATHIOPRINE [Concomitant]

REACTIONS (3)
  - CUTANEOUS VASCULITIS [None]
  - IMPAIRED HEALING [None]
  - ULCER [None]
